FAERS Safety Report 19508989 (Version 1)
Quarter: 2021Q3

REPORT INFORMATION
  Report Type: Spontaneous
  Country: FR (occurrence: FR)
  Receive Date: 20210709
  Receipt Date: 20210709
  Transmission Date: 20211014
  Serious: Yes (Hospitalization)
  Sender: FDA-Public Use
  Company Number: FR-SUN PHARMACEUTICAL INDUSTRIES LTD-2021RR-303416

PATIENT
  Age: 31 Year
  Sex: Female
  Weight: 60 kg

DRUGS (4)
  1. ZOMIGORO [Suspect]
     Active Substance: ZOLMITRIPTAN
     Indication: HEADACHE
     Dosage: 6 DOSAGE FORM, MONTHLY
     Route: 048
     Dates: end: 20200907
  2. SPIFEN 400 MG, COMPRIME PELLICULE [Suspect]
     Active Substance: IBUPROFEN
     Indication: HEADACHE
     Dosage: 800 MILLIGRAM, DAILY
     Route: 048
     Dates: start: 2003, end: 20200907
  3. PRONTALGINE (ACETAMINOPHEN\CAFFEINE\CODEINE PHOSPHATE) [Suspect]
     Active Substance: ACETAMINOPHEN\CAFFEINE\CODEINE PHOSPHATE
     Indication: HEADACHE
     Dosage: 3 DOSAGE FORM, DAILY
     Route: 048
     Dates: end: 20200907
  4. IBUPROFEN. [Suspect]
     Active Substance: IBUPROFEN
     Indication: HEADACHE
     Dosage: 800 MILLIGRAM, DAILY
     Route: 048
     Dates: start: 1990, end: 2003

REACTIONS (2)
  - Drug abuse [Not Recovered/Not Resolved]
  - Headache [Not Recovered/Not Resolved]

NARRATIVE: CASE EVENT DATE: 1990
